FAERS Safety Report 4558181-5 (Version None)
Quarter: 2005Q1

REPORT INFORMATION
  Report Type: 
  Country: None (occurrence: None)
  Receive Date: 20050103
  Receipt Date: 20041027
  Transmission Date: 20050727
  Serious: Yes (Other)
  Sender: FDA-Public Use
  Company Number: 2004UW22337

PATIENT
  Age: 73 Year
  Sex: Female
  Weight: 50.802 kg

DRUGS (4)
  1. CRESTOR [Suspect]
     Dosage: 5 MG PO
     Route: 048
     Dates: start: 20040101
  2. NORVASC [Concomitant]
  3. WELLBUTRIN [Concomitant]
  4. SEROQUEL [Concomitant]

REACTIONS (5)
  - ALOPECIA [None]
  - ERYTHEMA [None]
  - HYPOTRICHOSIS [None]
  - PRURITUS [None]
  - SCAB [None]
